FAERS Safety Report 8854724 (Version 3)
Quarter: 2013Q4

REPORT INFORMATION
  Report Type: Report from Study
  Country: JP (occurrence: JP)
  Receive Date: 20121023
  Receipt Date: 20131108
  Transmission Date: 20140711
  Serious: Yes (Congenital Anomaly, Other)
  Sender: FDA-Public Use
  Company Number: JP-009507513-1210JPN007431

PATIENT
  Sex: Male
  Weight: 2.9 kg

DRUGS (7)
  1. GANIREST SUBCUTANEOUS 0.25MG SYRINGE [Suspect]
     Indication: PREVENTION OF PREMATURE OVULATION
     Dosage: 0.25 MG, UNK, 1 DAY
     Route: 065
     Dates: start: 20110301, end: 20110302
  2. FOLYRMON P [Concomitant]
     Indication: IN VITRO FERTILISATION
     Dosage: 150 UNDER 1000 UNITS
     Route: 065
     Dates: start: 20110223, end: 20110223
  3. MENOTROPINS [Concomitant]
     Indication: IN VITRO FERTILISATION
     Dosage: 150 (UNDER 1000 UNITS)
     Route: 065
     Dates: start: 20110223, end: 20110223
  4. FOLLITROPIN ALFA [Concomitant]
     Indication: IN VITRO FERTILISATION
     Dosage: 150 (UNDER 1000 UNITS)
     Route: 065
     Dates: start: 20110224, end: 20110227
  5. OZEX (TOSUFLOXACIN TOSYLATE) [Concomitant]
     Indication: IN VITRO FERTILISATION
     Dosage: 150 MG, QD
     Route: 065
     Dates: start: 20110305, end: 20110307
  6. VOLTAREN [Concomitant]
     Indication: IN VITRO FERTILISATION
     Dosage: 50 MG, QD
     Route: 065
     Dates: start: 20110305, end: 20110305
  7. GONADOTROPIN, CHORIONIC [Concomitant]
     Indication: OVULATION INDUCTION
     Dosage: 5 THOUSAND-MILL ION UNIT
     Route: 065
     Dates: start: 20110303, end: 20110303

REACTIONS (3)
  - Trisomy 21 [Not Recovered/Not Resolved]
  - Ventricular septal defect [Recovered/Resolved]
  - Ventricular septal defect repair [Recovered/Resolved]
